FAERS Safety Report 25332490 (Version 1)
Quarter: 2025Q2

REPORT INFORMATION
  Report Type: Spontaneous
  Country: US (occurrence: US)
  Receive Date: 20250519
  Receipt Date: 20250519
  Transmission Date: 20250717
  Serious: Yes (Other)
  Sender: ADMA BIOLOGICS
  Company Number: US-ADMA BIOLOGICS INC.-US-2025ADM000173

PATIENT
  Age: 10 Year
  Sex: Male

DRUGS (6)
  1. HUMAN IMMUNOGLOBULIN G [Suspect]
     Active Substance: HUMAN IMMUNOGLOBULIN G
     Indication: Febrile infection-related epilepsy syndrome
     Route: 042
  2. METHYLPREDNISOLONE [Suspect]
     Active Substance: METHYLPREDNISOLONE
     Indication: Febrile infection-related epilepsy syndrome
     Route: 042
  3. ANAKINRA [Suspect]
     Active Substance: ANAKINRA
     Indication: Febrile infection-related epilepsy syndrome
     Route: 065
  4. TOCILIZUMAB [Suspect]
     Active Substance: TOCILIZUMAB
     Indication: Febrile infection-related epilepsy syndrome
     Dosage: 8 MILLIGRAM/KILOGRAM, QD FOR ONE DAY
     Route: 065
  5. BARICITINIB [Suspect]
     Active Substance: BARICITINIB
     Indication: Febrile infection-related epilepsy syndrome
     Dosage: 4 MG, QD
     Route: 065
  6. BARICITINIB [Suspect]
     Active Substance: BARICITINIB
     Dosage: 2 MG, QD
     Route: 065

REACTIONS (6)
  - Pneumonia [Unknown]
  - Bacteraemia [Unknown]
  - Drug-induced liver injury [Unknown]
  - Tracheitis [Unknown]
  - Urinary tract infection [Unknown]
  - Off label use [Unknown]
